FAERS Safety Report 10244885 (Version 6)
Quarter: 2015Q1

REPORT INFORMATION
  Report Type: Spontaneous
  Country: IT (occurrence: IT)
  Receive Date: 20140618
  Receipt Date: 20150316
  Transmission Date: 20150720
  Serious: Yes (Life-Threatening, Hospitalization)
  Sender: FDA-Public Use
  Company Number: IT-TEVA-488361ISR

PATIENT
  Age: 12 Year
  Sex: Female
  Weight: 45 kg

DRUGS (5)
  1. ALLOPURINOLO TEVA ITALIA 300 MG [Suspect]
     Active Substance: ALLOPURINOL
     Dosage: 600 MILLIGRAM DAILY;
     Route: 048
     Dates: start: 20140516, end: 20140527
  2. FLUORURACILE TEVA [Suspect]
     Active Substance: FLUOROURACIL
     Indication: UNDIFFERENTIATED NASOPHARYNGEAL CARCINOMA
     Route: 042
     Dates: start: 20140516, end: 20140520
  3. TACHIDOL 500 MG/30MG [Concomitant]
     Dosage: 1 DOSAGE FORMS DAILY;
     Route: 048
     Dates: start: 20140508, end: 20140522
  4. AUGMENTIN 875 MG/125 MG [Concomitant]
     Dosage: 2 GRAM DAILY;
     Route: 048
     Dates: start: 20140604, end: 20140605
  5. CISPLATINO ACCORD HEALTHCARE ITALIA [Suspect]
     Active Substance: CISPLATIN
     Indication: UNDIFFERENTIATED NASOPHARYNGEAL CARCINOMA
     Route: 042
     Dates: start: 20140516, end: 20140516

REACTIONS (3)
  - Stevens-Johnson syndrome [Not Recovered/Not Resolved]
  - Toxic epidermal necrolysis [Recovering/Resolving]
  - Acquired epidermolysis bullosa [Recovering/Resolving]

NARRATIVE: CASE EVENT DATE: 20140605
